FAERS Safety Report 8849625 (Version 1)
Quarter: 2012Q4

REPORT INFORMATION
  Report Type: Spontaneous
  Country: US (occurrence: None)
  Receive Date: 20121018
  Receipt Date: 20121018
  Transmission Date: 20130627
  Serious: Yes (Other)
  Sender: FDA-Public Use
  Company Number: None

PATIENT
  Age: 42 Year
  Sex: Male
  Weight: 118 kg

DRUGS (14)
  1. PROGRAF [Suspect]
     Indication: KIDNEY TRANSPLANT
     Dosage: 2mg QAM po 1mo prior to elevated lab
     Route: 048
  2. PROGRAF [Suspect]
     Indication: KIDNEY TRANSPLANT
     Dosage: 1mg  QPM  po
     Route: 048
  3. CINACALCET [Concomitant]
  4. FUROSEMIDE [Concomitant]
  5. INSULIN NPH [Concomitant]
  6. K-PHOS NEUTRAL [Concomitant]
  7. MAGNESIUM OXIDE [Concomitant]
  8. MMF [Concomitant]
  9. KC1 [Concomitant]
  10. SENNOSIDES [Concomitant]
  11. WARFARIN [Concomitant]
  12. METOPROLOL TARTRATE [Concomitant]
  13. OMEPRAZOLE [Concomitant]
  14. PREDNISONE [Concomitant]

REACTIONS (2)
  - Immunosuppressant drug level increased [None]
  - Product substitution issue [None]
